FAERS Safety Report 9784496 (Version 1)
Quarter: 2013Q4

REPORT INFORMATION
  Report Type: Spontaneous
  Country: US (occurrence: US)
  Receive Date: 20131226
  Receipt Date: 20131226
  Transmission Date: 20140711
  Serious: No
  Sender: FDA-Public Use
  Company Number: US-BAXTER-2013BAX049811

PATIENT
  Age: 43 Year
  Sex: Female

DRUGS (3)
  1. GAMMAGARD LIQUID [Suspect]
     Indication: IMMUNODEFICIENCY COMMON VARIABLE
     Route: 042
  2. GAMMAGARD LIQUID [Suspect]
     Dates: start: 20131205, end: 20131205
  3. DEMEROL [Concomitant]
     Indication: PREMEDICATION

REACTIONS (4)
  - Neck pain [Unknown]
  - Back pain [Unknown]
  - Hypertension [Unknown]
  - Dyspnoea [Unknown]
